FAERS Safety Report 20306988 (Version 1)
Quarter: 2022Q1

REPORT INFORMATION
  Report Type: Spontaneous
  Country: DE (occurrence: DE)
  Receive Date: 20220107
  Receipt Date: 20220107
  Transmission Date: 20220423
  Serious: Yes (Hospitalization)
  Sender: FDA-Public Use
  Company Number: DE-ADRED-05764-01

PATIENT
  Age: 66 Year
  Sex: Female
  Weight: 70 kg

DRUGS (13)
  1. IRINOTECAN [Suspect]
     Active Substance: IRINOTECAN
     Indication: Product used for unknown indication
     Dosage: ACCORDING TO THE SCHEME OF THE TWENTY-SIXTH OF MAY, SOLUTION FOR INJECTION / INFUSION ()
     Route: 042
  2. OXALIPLATIN [Suspect]
     Active Substance: OXALIPLATIN
     Indication: Product used for unknown indication
     Dosage: ACCORDING TO THE SCHEME OF THE TWENTY-SIXTH OF MAY, SOLUTION FOR INJECTION / INFUSION ()
     Route: 042
  3. FLUOROURACIL [Suspect]
     Active Substance: FLUOROURACIL
     Indication: Product used for unknown indication
     Dosage: NACH SCHEMA SECHSUNDZWANZIGSTEN MAI, INJEKTIONS-/INFUSIONSL?SUNG ()
     Route: 042
  4. POLYETHYLENE GLYCOL 3350 [Concomitant]
     Active Substance: POLYETHYLENE GLYCOL 3350
     Indication: Product used for unknown indication
     Dosage: 1-0-0-0, BEUTEL ()
     Route: 048
  5. MCP-ratiopharm 10mg [Concomitant]
     Indication: Product used for unknown indication
     Dosage: 10 MG, 1-1-1-0, TABLETTEN ()
     Route: 048
  6. Pantoprazol Aristo 40mg [Concomitant]
     Indication: Product used for unknown indication
     Dosage: 40 MG, 1-0-1-0, TABLETTEN ()
     Route: 048
  7. CARBIMAZOLE [Concomitant]
     Active Substance: CARBIMAZOLE
     Indication: Product used for unknown indication
     Dosage: 10 MG, 1-0-1-0, TABLETTEN ()
     Route: 048
  8. APIXABAN [Concomitant]
     Active Substance: APIXABAN
     Indication: Product used for unknown indication
     Dosage: 2.5 MG, 1-0-1-0, TABLETTEN ()
     Route: 048
  9. ALLOPURINOL [Concomitant]
     Active Substance: ALLOPURINOL
     Indication: Product used for unknown indication
     Dosage: 100 MG, 1-0-0-0, TABLETTEN ()
     Route: 048
  10. CALCIUM CHLORIDE\SODIUM CHLORIDE\SODIUM PHOSPHATE, DIBASIC, ANHYDROUS\ [Concomitant]
     Active Substance: CALCIUM CHLORIDE\SODIUM CHLORIDE\SODIUM PHOSPHATE, DIBASIC, ANHYDROUS\SODIUM PHOSPHATE, MONOBASIC, A
     Indication: Product used for unknown indication
     Dosage: 1-1-1-1, PIPETTE ()
     Route: 048
  11. KALINOR-retard P 600mg [Concomitant]
     Indication: Product used for unknown indication
     Dosage: 600 MG, 2-2-2-0, KAPSELN ()
     Route: 048
  12. Onsetron-Denk 4mg [Concomitant]
     Indication: Product used for unknown indication
     Dosage: 4 MG, 2-0-2-0, SCHMELZTABLETTEN ()
     Route: 048
  13. HYDROMORPHONE [Concomitant]
     Active Substance: HYDROMORPHONE
     Indication: Product used for unknown indication
     Dosage: 4 MG, 1-0-1-0, KAPSELN ()
     Route: 048

REACTIONS (5)
  - Vomiting [Unknown]
  - Leukopenia [Unknown]
  - Nausea [Unknown]
  - Hypokalaemia [Unknown]
  - General physical health deterioration [Unknown]
